FAERS Safety Report 5123750-0 (Version None)
Quarter: 2006Q4

REPORT INFORMATION
  Report Type: 
  Country: None (occurrence: None)
  Receive Date: 20061005
  Receipt Date: 20060915
  Transmission Date: 20070319
  Serious: Yes (Hospitalization)
  Sender: FDA-Public Use
  Company Number: CO200609004558

PATIENT
  Age: 64 Year
  Sex: 0

DRUGS (6)
  1. CYMBALTA [Suspect]
     Indication: DEPRESSION
     Dosage: 60 MG, DAILY 1/D, ORAL
     Route: 048
     Dates: start: 20060912, end: 20060913
  2. TYROXINE (LEVOTHYROXINE SODIUM) [Concomitant]
  3. OMEPRAZOLE [Concomitant]
  4. METOPROLOL TARTRATE [Concomitant]
  5. GLYBURIDE [Concomitant]
  6. ACETAMINOPHEN [Concomitant]

REACTIONS (8)
  - CYANOSIS [None]
  - HEADACHE [None]
  - HYPERHIDROSIS [None]
  - HYPOAESTHESIA [None]
  - INSOMNIA [None]
  - NAUSEA [None]
  - PARAESTHESIA [None]
  - VOMITING [None]
